FAERS Safety Report 5445193-2 (Version None)
Quarter: 2007Q3

REPORT INFORMATION
  Report Type: 
  Country: None (occurrence: None)
  Receive Date: 20070906
  Receipt Date: 20070827
  Transmission Date: 20080115
  Serious: Yes (Other)
  Sender: FDA-Public Use
  Company Number: SE-PFIZER INC-2007018368

PATIENT
  Sex: Male
  Weight: 98.6 kg

DRUGS (12)
  1. PREDNISOLONE [Suspect]
     Indication: WEGENER'S GRANULOMATOSIS
     Dosage: DAILY DOSE:60MG-FREQ:DAILY
  2. SOLU-MEDROL [Suspect]
     Indication: WEGENER'S GRANULOMATOSIS
  3. FLECAINIDE ACETATE [Concomitant]
  4. CANDESARTAN CILEXETIL [Concomitant]
     Route: 048
     Dates: start: 20060915, end: 20070115
  5. SULFAMETHOXAZOLE W/TRIMETHOPRIM [Concomitant]
  6. CALCICHEW [Concomitant]
  7. ALFACALCIDOL [Concomitant]
  8. OMEPRAZOLE [Concomitant]
  9. FUROSEMIDE [Concomitant]
  10. SODIUM BICARBONATE [Concomitant]
  11. CEPHALOSPORIN C [Concomitant]
  12. CYCLOPHOSPHAMIDE [Concomitant]
     Dates: start: 20070101

REACTIONS (4)
  - CATARACT [None]
  - MUSCLE DISORDER [None]
  - TREMOR [None]
  - VISION BLURRED [None]
